FAERS Safety Report 6716474-7 (Version None)
Quarter: 2010Q2

REPORT INFORMATION
  Report Type: 
  Country: None (occurrence: None)
  Receive Date: 20100507
  Receipt Date: 20100427
  Transmission Date: 20101027
  Serious: Yes (Hospitalization, Other)
  Sender: FDA-Public Use
  Company Number: PHHY2010JP18673

PATIENT
  Sex: Male
  Weight: 46 kg

DRUGS (8)
  1. NEORAL [Suspect]
     Indication: APLASTIC ANAEMIA
     Dosage: 200 MG DAILY
     Route: 048
     Dates: start: 20071121, end: 20100325
  2. ARGAMATE [Suspect]
  3. CALCIUM POLYSTYRENE SULPHONATE [Suspect]
     Indication: BLOOD POTASSIUM INCREASED
     Dosage: 150 MG DAILY
     Route: 048
     Dates: start: 20090701, end: 20100325
  4. EXJADE [Concomitant]
     Dosage: 500 MG
     Route: 048
     Dates: start: 20091202
  5. EXJADE [Concomitant]
     Dosage: 375 MG
     Route: 048
  6. PRIMOBOLAN [Concomitant]
     Dosage: 10 MG
     Route: 048
     Dates: start: 20071121
  7. TAKEPRON [Concomitant]
     Dosage: 30 MG
     Route: 048
     Dates: start: 20080903
  8. NEUTROGIN [Concomitant]
     Dosage: 100 MG
     Route: 058
     Dates: start: 20080806

REACTIONS (8)
  - ABDOMINAL PAIN [None]
  - BLOOD POTASSIUM INCREASED [None]
  - DECREASED APPETITE [None]
  - DEHYDRATION [None]
  - ILEUS [None]
  - IMPAIRED GASTRIC EMPTYING [None]
  - RENAL IMPAIRMENT [None]
  - SUBILEUS [None]
